FAERS Safety Report 4851535-9 (Version None)
Quarter: 2005Q4

REPORT INFORMATION
  Report Type: 
  Country: None (occurrence: None)
  Receive Date: 20051212
  Receipt Date: 20051130
  Transmission Date: 20060501
  Serious: Yes (Hospitalization)
  Sender: FDA-Public Use
  Company Number: FR-ROCHE-427074

PATIENT
  Age: 43 Year
  Sex: Male

DRUGS (3)
  1. INTERFERON ALFA [Suspect]
     Route: 058
     Dates: start: 20000215, end: 20000815
  2. RIBAVIRIN [Suspect]
     Route: 065
     Dates: start: 20000215, end: 20000315
  3. RIBAVIRIN [Suspect]
     Dosage: DOSE REDUCED DUE TO ANAEMIA.
     Route: 065
     Dates: start: 20000315, end: 20000815

REACTIONS (3)
  - ARTHRALGIA [None]
  - CROHN'S DISEASE [None]
  - MICROCYTIC ANAEMIA [None]
